FAERS Safety Report 6765856-6 (Version None)
Quarter: 2010Q2

REPORT INFORMATION
  Report Type: 
  Country: None (occurrence: None)
  Receive Date: 20100611
  Receipt Date: 20100610
  Transmission Date: 20101027
  Serious: Yes (Other)
  Sender: FDA-Public Use
  Company Number: US-ROXANE LABORATORIES, INC.-2010-RO-00705RO

PATIENT
  Age: 24 Year
  Sex: Female

DRUGS (2)
  1. CODEINE SULFATE [Suspect]
     Indication: MIGRAINE
     Dosage: 1000 MG
  2. ACETAMINOPHEN [Suspect]
     Indication: MIGRAINE

REACTIONS (2)
  - MIGRAINE [None]
  - SPINAL DISORDER [None]
